FAERS Safety Report 9894636 (Version 1)
Quarter: 2014Q1

REPORT INFORMATION
  Report Type: Spontaneous
  Country: DE (occurrence: DE)
  Receive Date: 20140213
  Receipt Date: 20140213
  Transmission Date: 20141002
  Serious: Yes (Other)
  Sender: FDA-Public Use
  Company Number: DE-TEVA-461841GER

PATIENT
  Age: 45 Year
  Sex: Female
  Weight: 64 kg

DRUGS (1)
  1. METRONIDAZOL [Suspect]
     Indication: CLOSTRIDIUM DIFFICILE COLITIS
     Dosage: 1200 MILLIGRAM DAILY;
     Route: 048
     Dates: start: 20140122, end: 20140131

REACTIONS (3)
  - Oropharyngeal blistering [Recovered/Resolved]
  - Dysphagia [Recovered/Resolved]
  - Pharyngitis [Recovered/Resolved]
